FAERS Safety Report 12983079 (Version 1)
Quarter: 2016Q4

REPORT INFORMATION
  Report Type: Spontaneous
  Country: US (occurrence: US)
  Receive Date: 20161129
  Receipt Date: 20161129
  Transmission Date: 20170207
  Serious: Yes (Death)
  Sender: FDA-Public Use
  Company Number: None

PATIENT
  Age: 69 Year
  Sex: Male

DRUGS (1)
  1. XARELTO [Suspect]
     Active Substance: RIVAROXABAN
     Dosage: XARELTO 15 MG PO BID X 21 DAYS
     Route: 048

REACTIONS (18)
  - Asthenia [None]
  - Extra dose administered [None]
  - Gastrointestinal haemorrhage [None]
  - Wrong technique in product usage process [None]
  - Cardio-respiratory arrest [None]
  - Fatigue [None]
  - Dizziness [None]
  - Confusional state [None]
  - Haemoptysis [None]
  - Contusion [None]
  - Localised oedema [None]
  - Anaemia [None]
  - Renal failure [None]
  - Constipation [None]
  - Hypotension [None]
  - Hyponatraemia [None]
  - Dyspnoea [None]
  - Brain injury [None]
